FAERS Safety Report 6251540-4 (Version None)
Quarter: 2009Q2

REPORT INFORMATION
  Report Type: 
  Country: None (occurrence: None)
  Receive Date: 20090628
  Receipt Date: 20090628
  Transmission Date: 20091009
  Serious: Yes (Other)
  Sender: FDA-Public Use
  Company Number: None

PATIENT
  Age: 42 Year
  Sex: Female
  Weight: 48.9885 kg

DRUGS (1)
  1. ADDERALL 15 [Suspect]
     Indication: ATTENTION DEFICIT/HYPERACTIVITY DISORDER
     Dosage: ONE CAPSUL DAILY PO
     Route: 048
     Dates: start: 20090618, end: 20090629

REACTIONS (5)
  - DRUG INEFFECTIVE [None]
  - DRUG INTERACTION [None]
  - FATIGUE [None]
  - FEELING ABNORMAL [None]
  - PRODUCT SUBSTITUTION ISSUE [None]
